FAERS Safety Report 16610087 (Version 1)
Quarter: 2019Q3

REPORT INFORMATION
  Report Type: Spontaneous
  Country: US (occurrence: US)
  Receive Date: 20190607
  Receipt Date: 20190607
  Transmission Date: 20191004
  Serious: No
  Sender: FDA-Public Use
  Company Number: None

PATIENT
  Age: 55 Year
  Sex: Female
  Weight: 68.49 kg

DRUGS (1)
  1. TALTZ [Suspect]
     Active Substance: IXEKIZUMAB
     Indication: PSORIASIS
     Dosage: THEN EVERY 4 WEEKS
     Route: 058
     Dates: start: 201904

REACTIONS (4)
  - Paraesthesia [None]
  - Pain [None]
  - Contusion [None]
  - Swelling [None]
